FAERS Safety Report 9260065 (Version 1)
Quarter: 2013Q2

REPORT INFORMATION
  Report Type: Spontaneous
  Country: US (occurrence: US)
  Receive Date: 20130429
  Receipt Date: 20130429
  Transmission Date: 20140414
  Serious: Yes (Hospitalization)
  Sender: FDA-Public Use
  Company Number: US-JNJFOC-20130408846

PATIENT
  Sex: Female

DRUGS (8)
  1. RISPERDAL CONSTA [Suspect]
     Indication: DEPRESSION
     Route: 030
     Dates: start: 20130315
  2. RISPERDAL [Suspect]
     Indication: DEPRESSION
     Route: 048
  3. SEROQUEL [Concomitant]
     Indication: PRODUCT USED FOR UNKNOWN INDICATION
     Route: 048
  4. TRAZODONE [Concomitant]
     Indication: PRODUCT USED FOR UNKNOWN INDICATION
     Route: 048
  5. ZOLOFT [Concomitant]
     Indication: PRODUCT USED FOR UNKNOWN INDICATION
     Route: 048
     Dates: end: 201302
  6. BUSPAR [Concomitant]
     Indication: PRODUCT USED FOR UNKNOWN INDICATION
     Dosage: 60 MG TOTAL
     Route: 048
  7. LAMICTAL [Concomitant]
     Indication: PRODUCT USED FOR UNKNOWN INDICATION
     Route: 048
  8. CLONOPIN [Concomitant]
     Indication: PRODUCT USED FOR UNKNOWN INDICATION
     Dosage: 3 MG TOTAL
     Route: 048

REACTIONS (3)
  - Suicidal ideation [Unknown]
  - Impulsive behaviour [Unknown]
  - Off label use [Unknown]
